FAERS Safety Report 9321650 (Version 8)
Quarter: 2015Q1

REPORT INFORMATION
  Report Type: Report from Study
  Country: US (occurrence: US)
  Receive Date: 20130531
  Receipt Date: 20150202
  Transmission Date: 20150721
  Serious: Yes (Hospitalization, Other)
  Sender: FDA-Public Use
  Company Number: US-ACTELION-A-NJ2013-83753

PATIENT
  Age: 59 Year
  Sex: Female

DRUGS (2)
  1. LASIX [Concomitant]
     Active Substance: FUROSEMIDE
  2. TRACLEER [Suspect]
     Active Substance: BOSENTAN\BOSENTAN MONOHYDRATE
     Indication: PULMONARY ARTERIAL HYPERTENSION
     Dosage: UNK
     Route: 048

REACTIONS (13)
  - Benign neoplasm of spinal cord [Unknown]
  - Spinal cord operation [Unknown]
  - Lymphadenopathy [Unknown]
  - Malaise [Unknown]
  - Neoplasm malignant [Unknown]
  - Chemotherapy [Unknown]
  - Muscle spasms [Unknown]
  - Pneumonia [Unknown]
  - Pulmonary mass [Unknown]
  - Dyspnoea [Unknown]
  - Oxygen saturation decreased [Unknown]
  - Diagnostic aspiration [Unknown]
  - Radiotherapy to bone [Unknown]

NARRATIVE: CASE EVENT DATE: 20130427
